FAERS Safety Report 19563098 (Version 3)
Quarter: 2022Q3

REPORT INFORMATION
  Report Type: Report from Study
  Country: EG (occurrence: EG)
  Receive Date: 20210714
  Receipt Date: 20220906
  Transmission Date: 20221026
  Serious: Yes (Other)
  Sender: FDA-Public Use
  Company Number: EG-NOVARTISPH-NVSC2021EG152129

PATIENT
  Age: 67 Year
  Sex: Male

DRUGS (12)
  1. ENTRESTO [Suspect]
     Active Substance: SACUBITRIL\VALSARTAN
     Indication: Cardiac failure
     Dosage: 1 DF, QD
     Route: 048
     Dates: start: 201907, end: 202105
  2. ENTRESTO [Suspect]
     Active Substance: SACUBITRIL\VALSARTAN
     Dosage: 0.5 DF, BID
     Route: 048
     Dates: start: 202105
  3. ENTRESTO [Suspect]
     Active Substance: SACUBITRIL\VALSARTAN
     Dosage: 100 MG, (3 OR 4 YEARS AS PER REPORTER)
     Route: 048
  4. CARVEDILOL [Concomitant]
     Active Substance: CARVEDILOL
     Indication: Cardiac failure
     Dosage: 0.5 DF, BID
     Route: 065
     Dates: start: 2018
  5. TORSEMIDE [Concomitant]
     Active Substance: TORSEMIDE
     Indication: Cardiac failure
     Dosage: 1 DF, QD(HALF TABLET ON EMPTY STOMACH)
     Route: 065
     Dates: start: 2018
  6. CORDARONE [Concomitant]
     Active Substance: AMIODARONE HYDROCHLORIDE
     Indication: Cardiac failure
     Dosage: 1 DF, QD (1 TABLET AT NIGHT)
     Route: 065
  7. XANOXIBAN [Concomitant]
     Indication: Product used for unknown indication
     Dosage: 1 DF, QD
     Route: 065
  8. CRESTOLIP [Concomitant]
     Indication: Cardiac failure
     Dosage: 1 DF, QD (AT NIGHT)
     Route: 065
     Dates: start: 2018
  9. NEXIUM [Concomitant]
     Active Substance: ESOMEPRAZOLE MAGNESIUM
     Indication: Cardiac failure
     Dosage: 1 DF, QD (1 TABLET)ON EMPTY STOMACH
     Route: 065
     Dates: start: 2018
  10. ESZOPICLONE [Concomitant]
     Active Substance: ESZOPICLONE
     Indication: Product used for unknown indication
     Dosage: 1 DF, QD
     Route: 065
  11. GAST-REG [Concomitant]
     Indication: Cardiac failure
     Dosage: 1 DOSAGE FORM, QD (1 TABLET AFTER BREAKFAST)
     Route: 065
     Dates: start: 2018
  12. DONIFOXATE [Concomitant]
     Indication: Prophylaxis
     Dosage: 1 DOSAGE FORM, (EVERY OTHER DAY)
     Route: 065
     Dates: start: 2018

REACTIONS (9)
  - Vomiting [Recovered/Resolved]
  - Blood urea increased [Recovered/Resolved]
  - Blood creatinine increased [Recovered/Resolved]
  - Blood potassium decreased [Recovered/Resolved]
  - Blood sodium decreased [Recovered/Resolved]
  - Ejection fraction decreased [Unknown]
  - Wrong technique in product usage process [Not Recovered/Not Resolved]
  - Inappropriate schedule of product administration [Unknown]
  - Off label use [Not Recovered/Not Resolved]

NARRATIVE: CASE EVENT DATE: 20210301
